APPROVED DRUG PRODUCT: LIDOCAINE HYDROCHLORIDE
Active Ingredient: LIDOCAINE HYDROCHLORIDE
Strength: 1.5%
Dosage Form/Route: INJECTABLE;INJECTION
Application: A080420 | Product #005
Applicant: ABRAXIS PHARMACEUTICAL PRODUCTS
Approved: Approved Prior to Jan 1, 1982 | RLD: No | RS: No | Type: DISCN